FAERS Safety Report 21693702 (Version 1)
Quarter: 2022Q4

REPORT INFORMATION
  Report Type: Spontaneous
  Country: US (occurrence: None)
  Receive Date: 20221206
  Receipt Date: 20221206
  Transmission Date: 20230113
  Serious: Yes (Life-Threatening, Hospitalization)
  Sender: FDA-Public Use
  Company Number: None

PATIENT
  Age: 82 Year
  Sex: 0

DRUGS (2)
  1. RIVAROXABAN [Suspect]
     Active Substance: RIVAROXABAN
  2. ASPIRIN [Suspect]
     Active Substance: ASPIRIN

REACTIONS (5)
  - Diarrhoea [None]
  - Asthenia [None]
  - Melaena [None]
  - Diverticulum [None]
  - Haemorrhoids [None]

NARRATIVE: CASE EVENT DATE: 20220812
